FAERS Safety Report 7888777-4 (Version None)
Quarter: 2011Q4

REPORT INFORMATION
  Report Type: 
  Country: None (occurrence: None)
  Receive Date: 20111101
  Receipt Date: 20111024
  Transmission Date: 20120403
  Serious: Yes (Life-Threatening, Hospitalization)
  Sender: FDA-Public Use
  Company Number: 2011SP050380

PATIENT
  Age: 46 Year
  Sex: Female

DRUGS (2)
  1. TRAZODONE HCL [Concomitant]
  2. SAPHRIS [Suspect]
     Indication: PRODUCT USED FOR UNKNOWN INDICATION
     Dosage: 10 MG; BID; SL
     Dates: start: 20110101

REACTIONS (1)
  - PULMONARY EMBOLISM [None]
